FAERS Safety Report 8776507 (Version 3)
Quarter: 2012Q4

REPORT INFORMATION
  Report Type: 
  Country: JP (occurrence: JP)
  Receive Date: 20120910
  Receipt Date: 20121113
  Transmission Date: 20130627
  Serious: Yes (Death)
  Sender: FDA-Public Use
  Company Number: PHHY2012JP077905

PATIENT
  Age: 67 Year
  Sex: Male

DRUGS (1)
  1. NILOTINIB [Suspect]
     Indication: CHRONIC MYELOID LEUKAEMIA
     Dosage: 400 mg, per day
     Route: 048
     Dates: start: 201105, end: 201108

REACTIONS (2)
  - Malignant neoplasm progression [Fatal]
  - White blood cell count increased [Unknown]
